FAERS Safety Report 23591716 (Version 1)
Quarter: 2024Q1

REPORT INFORMATION
  Report Type: Spontaneous
  Country: US (occurrence: None)
  Receive Date: 20240304
  Receipt Date: 20240304
  Transmission Date: 20240410
  Serious: Yes (Hospitalization)
  Sender: FDA-Public Use
  Company Number: None

PATIENT
  Sex: Female

DRUGS (11)
  1. CAPECITABINE [Suspect]
     Active Substance: CAPECITABINE
     Route: 048
     Dates: start: 20231107
  2. ADRENAL CAP ESSENCE [Concomitant]
  3. CALCIUM/D [Concomitant]
  4. CAPECITABINE [Concomitant]
  5. GABAPENTIN [Concomitant]
  6. LIDO/PRILOCN CRE 2.5-5.5% [Concomitant]
  7. LISINOPRIL [Concomitant]
  8. MAGNESIUM [Concomitant]
  9. MINOCYCLINE HCL [Concomitant]
  10. MULTIVITAMIN TAB ADULT [Concomitant]
  11. PAROXETINE TAB 30MG [Concomitant]

REACTIONS (2)
  - Product use issue [None]
  - Type 2 diabetes mellitus [None]
